FAERS Safety Report 24898706 (Version 2)
Quarter: 2025Q3

REPORT INFORMATION
  Report Type: Spontaneous
  Country: US (occurrence: US)
  Receive Date: 20250129
  Receipt Date: 20250913
  Transmission Date: 20251021
  Serious: No
  Sender: AMGEN
  Company Number: US-AMGEN-USASP2025016651

PATIENT
  Sex: Female

DRUGS (1)
  1. OTEZLA [Suspect]
     Active Substance: APREMILAST
     Indication: Psoriasis
     Dosage: 30 MILLIGRAM, BID
     Route: 048
     Dates: start: 20241206

REACTIONS (6)
  - Infection [Unknown]
  - Nausea [Unknown]
  - Vomiting [Unknown]
  - Therapy non-responder [Unknown]
  - Rash [Unknown]
  - Discomfort [Unknown]
